FAERS Safety Report 8551766-0 (Version None)
Quarter: 2012Q3

REPORT INFORMATION
  Report Type: 
  Country: None (occurrence: None)
  Receive Date: 20120730
  Receipt Date: 20120724
  Transmission Date: 20120928
  Serious: Yes (Death, Hospitalization)
  Sender: FDA-Public Use
  Company Number: JP-UCBSA-057064

PATIENT
  Age: 74 Year
  Sex: Male

DRUGS (15)
  1. DICLOFENAC SODIUM [Concomitant]
     Dosage: DAILY DOSE: 50 MG
     Dates: start: 20120502
  2. SARPOGRELATE HYDROCHLORIDE [Concomitant]
     Dosage: DAILY DOSE :300 MG
     Dates: start: 20100114, end: 20120501
  3. OMEPRAZOLE [Concomitant]
     Dosage: DAILY DOSE : 10MG
     Dates: start: 20110616
  4. ALENDRONATE SODIUM [Concomitant]
     Dates: start: 20100114
  5. OMEPRAZOLE [Concomitant]
     Dosage: DAILY DOSE: 10 MG
     Dates: start: 20120517
  6. TERBINAFINE HCL [Concomitant]
     Dosage: AS REQUIRED
     Dates: start: 20110221, end: 20120501
  7. CIMZIA [Suspect]
     Dosage: 275-08-003:200 MG ONCE IN 2 WEEKS + 400 MG ONCE EVERY 2 WEEKS
     Route: 058
     Dates: start: 20091216
  8. ISONIAZID [Concomitant]
     Dosage: DAILY DOSE :100 MG
     Dates: start: 20110324, end: 20120516
  9. ROSUVASTATIN [Concomitant]
     Dosage: DAILY DOSE :2.5 MG
     Dates: start: 20100114, end: 20120511
  10. ZALTOPROFEN [Concomitant]
     Dosage: DALY DOSE :80 MG
     Dates: start: 20101215, end: 20120501
  11. PREDNISOLONE [Concomitant]
     Dosage: DAILY DOSE :1 MG
     Dates: start: 20120404
  12. CIMZIA [Suspect]
     Indication: RHEUMATOID ARTHRITIS
     Route: 058
     Dates: start: 20100629, end: 20120404
  13. HOCHU-EKKI-TO [Concomitant]
     Dosage: DAILY DOSE : 22.5 GM
     Dates: start: 20100716
  14. DICLOFENAC SODIUM [Concomitant]
     Dosage: DAILY DOSE :25 MG AS REQURED
     Dates: start: 20110713, end: 20120501
  15. PREDNISOLONE [Concomitant]
     Dosage: DAILY DOSE: 1 MG
     Dates: start: 20120517

REACTIONS (1)
  - NEOPLASM MALIGNANT [None]
